FAERS Safety Report 19178126 (Version 1)
Quarter: 2021Q2

REPORT INFORMATION
  Report Type: Spontaneous
  Country: SE (occurrence: SE)
  Receive Date: 20210426
  Receipt Date: 20210426
  Transmission Date: 20210717
  Serious: Yes (Hospitalization)
  Sender: FDA-Public Use
  Company Number: SE-B.I. PHARMACEUTICALS,INC./RIDGEFIELD-2021-BI-098414

PATIENT
  Age: 78 Year
  Sex: Female
  Weight: 53 kg

DRUGS (8)
  1. FURIX [FUROSEMIDE] [Suspect]
     Active Substance: FUROSEMIDE
     Indication: PRODUCT USED FOR UNKNOWN INDICATION
     Dosage: 20 MG 20MG+0+0+0
     Route: 048
     Dates: start: 20210311
  2. IMOVANE [Suspect]
     Active Substance: ZOPICLONE
     Indication: PRODUCT USED FOR UNKNOWN INDICATION
     Dosage: 5 MG 5MG TN VB
     Route: 048
     Dates: start: 20200220
  3. LOSARTAN JUBILANT [Suspect]
     Active Substance: LOSARTAN POTASSIUM
     Indication: PRODUCT USED FOR UNKNOWN INDICATION
     Dosage: 50 MG 50MG+0+0+0
     Route: 048
     Dates: start: 20160713
  4. SERTRALINE [Suspect]
     Active Substance: SERTRALINE HYDROCHLORIDE
     Indication: PRODUCT USED FOR UNKNOWN INDICATION
     Dosage: 50 MG 2 X 1
     Route: 048
     Dates: start: 20191112
  5. FOLACIN [FOLIC ACID] [Suspect]
     Active Substance: FOLIC ACID
     Indication: PRODUCT USED FOR UNKNOWN INDICATION
     Dosage: 1 MG 1+0+0+0
     Route: 048
     Dates: start: 20170522
  6. SPIOLTO RESPIMAT [Suspect]
     Active Substance: OLODATEROL HYDROCHLORIDE\TIOTROPIUM BROMIDE MONOHYDRATE
     Indication: PRODUCT USED FOR UNKNOWN INDICATION
     Dosage: 2,5 MIKROGRAM/2,5 MIKROGRAM PER PUFF 2+2
     Route: 055
     Dates: start: 20170522
  7. ACETYLCYSTEIN MYLAN [Concomitant]
     Active Substance: ACETYLCYSTEINE
     Indication: PRODUCT USED FOR UNKNOWN INDICATION
     Dosage: 200 MG 1X1?2
     Route: 048
  8. EMCONCOR CHF [Suspect]
     Active Substance: BISOPROLOL FUMARATE
     Indication: PRODUCT USED FOR UNKNOWN INDICATION
     Dosage: 2,5 MG 2,5MG+0+0+0
     Route: 048
     Dates: start: 20100304

REACTIONS (1)
  - Vestibular neuronitis [Recovering/Resolving]

NARRATIVE: CASE EVENT DATE: 20210408
